FAERS Safety Report 4591344-1 (Version None)
Quarter: 2005Q1

REPORT INFORMATION
  Report Type: 
  Country: None (occurrence: None)
  Receive Date: 20050222
  Receipt Date: 20050204
  Transmission Date: 20050727
  Serious: Yes (Death)
  Sender: FDA-Public Use
  Company Number: CLOF-10000

PATIENT
  Age: 6 Year
  Sex: Female
  Weight: 24.5 kg

DRUGS (8)
  1. CLOLAR [Suspect]
     Indication: ACUTE LYMPHOCYTIC LEUKAEMIA
     Dates: start: 20050126, end: 20050126
  2. BACTRIM [Concomitant]
  3. LEVAQUIN [Concomitant]
  4. ACYCLOVIR [Concomitant]
  5. PREDNISONE [Concomitant]
  6. METHOTREXATE [Concomitant]
  7. GENTAMICIN [Concomitant]
  8. ETOPOSIDE [Concomitant]

REACTIONS (4)
  - ABDOMINAL COMPARTMENT SYNDROME [None]
  - HEPATORENAL SYNDROME [None]
  - MULTI-ORGAN FAILURE [None]
  - TUMOUR LYSIS SYNDROME [None]
